FAERS Safety Report 8860448 (Version 1)
Quarter: 2012Q4

REPORT INFORMATION
  Report Type: 
  Country: US (occurrence: US)
  Receive Date: 20121025
  Receipt Date: 20121025
  Transmission Date: 20130627
  Serious: Yes (Hospitalization)
  Sender: FDA-Public Use
  Company Number: US-BAYER-2012-109512

PATIENT
  Age: 28 Year
  Sex: Female

DRUGS (38)
  1. YASMIN [Suspect]
  2. NITROFURANTOIN [Concomitant]
  3. FENTANYL [Concomitant]
     Dosage: UNK
     Dates: start: 20080107
  4. CEPHALEXIN [Concomitant]
     Dosage: UNK
     Dates: start: 20080124
  5. PERCOCET [Concomitant]
     Dosage: UNK
     Dates: start: 20080107
  6. ERY-TAB [Concomitant]
  7. OXYCODONE W/PARACETAMOL [Concomitant]
  8. OXYCODONE [Concomitant]
  9. OXYCONTIN [Concomitant]
     Dosage: UNK
     Dates: start: 20080107
  10. IBUPROFEN [Concomitant]
  11. NAPROXEN [Concomitant]
     Dosage: UNK
     Dates: start: 20080107
  12. PROMETHAZINE [Concomitant]
  13. PHENERGAN [Concomitant]
     Dosage: UNK
     Dates: start: 20080107
  14. REGLAN [Concomitant]
     Dosage: UNK
     Dates: start: 20080107
  15. NEURONTIN [Concomitant]
     Dosage: UNK
     Dates: start: 20080107
  16. GABAPENTIN [Concomitant]
  17. FLEXERIL [Concomitant]
     Dosage: UNK
     Dates: start: 20080107
  18. PREDNISONE [Concomitant]
  19. TEMAZEPAM [Concomitant]
  20. RESTORIL [Concomitant]
     Dosage: UNK
     Dates: start: 20080107
  21. KLONOPIN [Concomitant]
     Dosage: UNK
     Dates: start: 20080107
  22. CLONAZEPAM [Concomitant]
  23. RANITIDINE [Concomitant]
  24. SENOKOT-S [Concomitant]
  25. NICOTINE [Concomitant]
  26. DIAZEPAM [Concomitant]
  27. VALIUM [Concomitant]
     Dosage: UNK
     Dates: start: 20080107
  28. ZOLOFT [Concomitant]
     Dosage: UNK
     Dates: start: 20080107
  29. SERTRALINE [Concomitant]
  30. MORPHINE [Concomitant]
     Dosage: UNK
     Dates: start: 20080110
  31. METOCLOPRAMIDE [Concomitant]
     Dosage: UNK
     Dates: start: 20080208
  32. MAGNESIUM [Concomitant]
     Dosage: UNK
     Dates: start: 20080109
  33. LISINOPRIL [Concomitant]
     Dosage: UNK
     Dates: start: 20080108
  34. HYOSCYAMINE [Concomitant]
  35. PHENAZOPYRIDINE [Concomitant]
  36. ZYRTEC [Concomitant]
  37. CATAPRES [Concomitant]
     Dosage: UNK
     Dates: start: 20080107
  38. CYCLOBENZAPRINE [Concomitant]

REACTIONS (3)
  - Pelvic venous thrombosis [None]
  - Deep vein thrombosis [None]
  - Thrombophlebitis superficial [None]
